FAERS Safety Report 20525816 (Version 1)
Quarter: 2022Q1

REPORT INFORMATION
  Report Type: Report from Study
  Country: US (occurrence: None)
  Receive Date: 20220228
  Receipt Date: 20220228
  Transmission Date: 20220423
  Serious: Yes (Other)
  Sender: FDA-Public Use
  Company Number: 2022A084868

PATIENT
  Age: 28934 Day
  Sex: Male

DRUGS (2)
  1. LYNPARZA [Suspect]
     Active Substance: OLAPARIB
     Indication: Prostate cancer
     Route: 048
     Dates: start: 202106
  2. LYNPARZA [Suspect]
     Active Substance: OLAPARIB
     Indication: Metastasis
     Route: 048
     Dates: start: 202106

REACTIONS (2)
  - Loss of consciousness [Unknown]
  - Dizziness [Unknown]

NARRATIVE: CASE EVENT DATE: 20220211
